FAERS Safety Report 5798957-X (Version None)
Quarter: 2008Q3

REPORT INFORMATION
  Report Type: 
  Country: None (occurrence: None)
  Receive Date: 20080702
  Receipt Date: 20080620
  Transmission Date: 20090109
  Serious: Yes (Other)
  Sender: FDA-Public Use
  Company Number: US-PFIZER INC-2005145537

PATIENT
  Sex: Male
  Weight: 113.4 kg

DRUGS (9)
  1. VIAGRA [Suspect]
     Indication: ERECTILE DYSFUNCTION
     Route: 065
  2. ACETYLSALICYLIC ACID SRT [Concomitant]
     Route: 065
  3. FLOMAX [Concomitant]
     Route: 065
  4. PROTONIX [Concomitant]
     Route: 065
  5. ZOCOR [Concomitant]
     Route: 065
  6. NADOLOL [Concomitant]
     Route: 065
  7. DIOVAN [Concomitant]
     Route: 065
  8. GLUCOPHAGE [Concomitant]
     Route: 065
  9. TESTOSTERONE [Concomitant]
     Route: 065

REACTIONS (2)
  - THERAPEUTIC RESPONSE DECREASED [None]
  - TRANSURETHRAL PROSTATECTOMY [None]
